FAERS Safety Report 11454271 (Version 1)
Quarter: 2015Q3

REPORT INFORMATION
  Report Type: Spontaneous
  Country: CO (occurrence: CO)
  Receive Date: 20150903
  Receipt Date: 20150903
  Transmission Date: 20151125
  Serious: Yes (Hospitalization)
  Sender: FDA-Public Use
  Company Number: CO-ASTRAZENECA-2015SE82727

PATIENT
  Sex: Male

DRUGS (2)
  1. VANNAIR [Suspect]
     Active Substance: BUDESONIDE\FORMOTEROL FUMARATE DIHYDRATE
     Dosage: SYMBICORT, DOSE AND FREQUENCY UNKNOWN
     Route: 055
  2. VANNAIR [Suspect]
     Active Substance: BUDESONIDE\FORMOTEROL FUMARATE DIHYDRATE
     Dosage: SYMBICORT PMDI, DOSE AND FREQUECNY UNKNOWN
     Route: 055

REACTIONS (3)
  - Medication error [Unknown]
  - Asthma [Unknown]
  - Treatment failure [Unknown]
